FAERS Safety Report 7730495-7 (Version None)
Quarter: 2011Q3

REPORT INFORMATION
  Report Type: 
  Country: None (occurrence: None)
  Receive Date: 20110906
  Receipt Date: 20110901
  Transmission Date: 20111222
  Serious: Yes (Other)
  Sender: FDA-Public Use
  Company Number: US-AMGEN-USASP2011045041

PATIENT
  Sex: Male

DRUGS (1)
  1. XGEVA [Suspect]
     Indication: FIBROUS DYSPLASIA OF BONE
     Dates: start: 20110201

REACTIONS (2)
  - LOWER LIMB FRACTURE [None]
  - FALL [None]
